FAERS Safety Report 5176886-2 (Version None)
Quarter: 2006Q4

REPORT INFORMATION
  Report Type: 
  Country: None (occurrence: None)
  Receive Date: 20061218
  Receipt Date: 20061206
  Transmission Date: 20070319
  Serious: Yes (Other)
  Sender: FDA-Public Use
  Company Number: PHEH2006US14958

PATIENT
  Age: 62 Year
  Sex: Male
  Weight: 108 kg

DRUGS (2)
  1. LOTREL [Suspect]
     Indication: HYPERTENSION
     Dosage: 5/40 MG, QD
     Route: 048
     Dates: start: 20061120, end: 20061129
  2. QUINAPRIL [Concomitant]

REACTIONS (5)
  - ERYTHEMA [None]
  - EYE PRURITUS [None]
  - FLUSHING [None]
  - HYPERSENSITIVITY [None]
  - OEDEMA PERIPHERAL [None]
